FAERS Safety Report 9172270 (Version 2)
Quarter: 2013Q2

REPORT INFORMATION
  Report Type: Spontaneous
  Country: US (occurrence: US)
  Receive Date: 20130319
  Receipt Date: 20130426
  Transmission Date: 20140414
  Serious: No
  Sender: FDA-Public Use
  Company Number: US-009507513-1303USA008619

PATIENT
  Sex: Female
  Weight: 106.12 kg

DRUGS (5)
  1. PEG-INTRON [Suspect]
     Indication: HEPATITIS C
     Dosage: REDIPEN,UNK
     Dates: start: 20100605, end: 20110506
  2. PEG-INTRON [Suspect]
     Dosage: UNK
     Dates: start: 20130311
  3. REBETOL [Suspect]
     Indication: HEPATITIS C
     Dosage: UNK
     Dates: start: 20100605
  4. REBETOL [Suspect]
     Dosage: DECREASED BY ONE PILL
     Dates: end: 20110506
  5. REBETOL [Suspect]
     Dosage: UNK
     Dates: start: 20130311

REACTIONS (11)
  - Skin disorder [Unknown]
  - Feeling hot [Unknown]
  - Weight increased [Unknown]
  - Chills [Unknown]
  - Influenza like illness [Unknown]
  - Dyspnoea [Unknown]
  - Nausea [Unknown]
  - Irritability [Unknown]
  - Dyspnoea [Unknown]
  - Drug ineffective [Unknown]
  - Drug ineffective [Unknown]
